FAERS Safety Report 6913446-4 (Version None)
Quarter: 2010Q3

REPORT INFORMATION
  Report Type: 
  Country: None (occurrence: None)
  Receive Date: 20100809
  Receipt Date: 20100729
  Transmission Date: 20110219
  Serious: Yes (Hospitalization)
  Sender: FDA-Public Use
  Company Number: JP-JNJFOC-20100702840

PATIENT
  Sex: Male

DRUGS (11)
  1. CRAVIT [Suspect]
     Indication: PRODUCT USED FOR UNKNOWN INDICATION
     Route: 048
  2. LOXONIN [Suspect]
     Indication: PRODUCT USED FOR UNKNOWN INDICATION
     Route: 048
  3. AMOXICILLIN TRIHYDRATE [Suspect]
     Indication: INFECTION
     Route: 048
  4. AMOXICILLIN TRIHYDRATE [Suspect]
     Indication: INFLAMMATION
     Route: 048
  5. DEPAKENE [Concomitant]
     Indication: CONVULSION
     Route: 048
  6. DAI-KENCHU-TO [Concomitant]
     Indication: BOWEL MOVEMENT IRREGULARITY
     Route: 048
  7. GASMOTIN [Concomitant]
     Indication: BOWEL MOVEMENT IRREGULARITY
     Route: 048
  8. OXAROL [Concomitant]
     Indication: PSORIASIS
     Route: 061
  9. RINDERON-DP [Concomitant]
     Indication: PSORIASIS
  10. DEPAKENE [Concomitant]
     Indication: PRODUCT USED FOR UNKNOWN INDICATION
     Route: 065
  11. RINDERON [Concomitant]
     Indication: PRODUCT USED FOR UNKNOWN INDICATION
     Route: 065

REACTIONS (3)
  - CONVULSION [None]
  - MOVEMENT DISORDER [None]
  - PAIN [None]
